FAERS Safety Report 12083190 (Version 3)
Quarter: 2016Q2

REPORT INFORMATION
  Report Type: Spontaneous
  Country: US (occurrence: US)
  Receive Date: 20160217
  Receipt Date: 20160517
  Transmission Date: 20160815
  Serious: No
  Sender: FDA-Public Use
  Company Number: PHEH2016US003857

PATIENT
  Age: 49 Year
  Sex: Female
  Weight: 106.6 kg

DRUGS (1)
  1. GILENYA [Suspect]
     Active Substance: FINGOLIMOD HYDROCHLORIDE
     Indication: RELAPSING-REMITTING MULTIPLE SCLEROSIS
     Dosage: 0.5 MG, QD
     Route: 048

REACTIONS (2)
  - Herpes zoster [Recovered/Resolved with Sequelae]
  - Post herpetic neuralgia [Unknown]

NARRATIVE: CASE EVENT DATE: 20160215
